FAERS Safety Report 14134582 (Version 4)
Quarter: 2017Q4

REPORT INFORMATION
  Report Type: Report from Study
  Country: BR (occurrence: BR)
  Receive Date: 20171027
  Receipt Date: 20171110
  Transmission Date: 20180321
  Serious: Yes (Life-Threatening, Other)
  Sender: FDA-Public Use
  Company Number: PHHY2017BR158275

PATIENT
  Age: 52 Year
  Sex: Male
  Weight: 60 kg

DRUGS (10)
  1. ENALAPRIL [Suspect]
     Active Substance: ENALAPRIL
     Indication: HYPERTENSION
  2. ENALAPRIL [Suspect]
     Active Substance: ENALAPRIL
     Indication: CARDIAC FAILURE
     Dosage: 5 MG, BID
     Route: 042
  3. ENALAPRIL [Suspect]
     Active Substance: ENALAPRIL
     Indication: HYPOTENSION
  4. ALDACTONE [Concomitant]
     Active Substance: SPIRONOLACTONE
     Indication: PRODUCT USED FOR UNKNOWN INDICATION
     Route: 065
  5. CARVEDILOL. [Concomitant]
     Active Substance: CARVEDILOL
     Indication: PRODUCT USED FOR UNKNOWN INDICATION
     Route: 065
  6. ENALAPRIL [Suspect]
     Active Substance: ENALAPRIL
     Indication: CARDIAC FAILURE CHRONIC
  7. ENALAPRIL [Suspect]
     Active Substance: ENALAPRIL
     Indication: CARDIAC FAILURE
     Dosage: 5 MG, Q12H
     Route: 048
     Dates: start: 20171001
  8. ENALAPRIL [Suspect]
     Active Substance: ENALAPRIL
     Indication: EJECTION FRACTION
  9. ENALAPRIL [Suspect]
     Active Substance: ENALAPRIL
     Indication: CORONARY ARTERY DISEASE
  10. ELIQUIS [Concomitant]
     Active Substance: APIXABAN
     Indication: PRODUCT USED FOR UNKNOWN INDICATION
     Route: 065

REACTIONS (19)
  - Drug ineffective [Unknown]
  - Cardiac failure [Unknown]
  - Dysphonia [Unknown]
  - Hunger [Unknown]
  - Condition aggravated [Unknown]
  - Sensation of foreign body [Unknown]
  - Dysphagia [Unknown]
  - Feeling abnormal [Unknown]
  - Pleural effusion [Unknown]
  - Urinary incontinence [Unknown]
  - Nausea [Unknown]
  - Ascites [Unknown]
  - Dysgeusia [Unknown]
  - Weight decreased [Unknown]
  - Abdominal distension [Unknown]
  - Insomnia [Unknown]
  - Dyspnoea [Unknown]
  - Blood pressure decreased [Unknown]
  - Malaise [Unknown]
